FAERS Safety Report 4892709-0 (Version None)
Quarter: 2006Q1

REPORT INFORMATION
  Report Type: 
  Country: None (occurrence: None)
  Receive Date: 20060125
  Receipt Date: 20060125
  Transmission Date: 20060701
  Serious: Yes (Hospitalization)
  Sender: FDA-Public Use
  Company Number: None

PATIENT
  Sex: Male
  Weight: 97.7 kg

DRUGS (5)
  1. WARFARIN [Suspect]
     Indication: DEEP VEIN THROMBOSIS
     Dosage: 5MG,DAILY, ORAL
     Route: 048
     Dates: start: 20050701
  2. DILTIAZEM HCL [Concomitant]
  3. WARFARIN [Concomitant]
  4. TAMSULOSIN HCL [Concomitant]
  5. ESCITALOPRAM OXALATE [Concomitant]

REACTIONS (1)
  - INTERNATIONAL NORMALISED RATIO DECREASED [None]
